FAERS Safety Report 15200515 (Version 1)
Quarter: 2018Q3

REPORT INFORMATION
  Report Type: Spontaneous
  Country: FR (occurrence: FR)
  Receive Date: 20180726
  Receipt Date: 20180726
  Transmission Date: 20181010
  Serious: Yes (Hospitalization, Other)
  Sender: FDA-Public Use
  Company Number: FR-ACCORD-069876

PATIENT
  Age: 0 Day
  Sex: Male
  Weight: 1.91 kg

DRUGS (2)
  1. IMUREL [Interacting]
     Active Substance: AZATHIOPRINE SODIUM
     Indication: CROHN^S DISEASE
     Dosage: 100 MG/J
     Route: 064
     Dates: end: 20171101
  2. ALLOPURINOL. [Suspect]
     Active Substance: ALLOPURINOL
     Indication: CROHN^S DISEASE
     Dosage: 100 MG/J
     Route: 064
     Dates: start: 20170530, end: 20171101

REACTIONS (3)
  - Drug interaction [Unknown]
  - Lymphocytopenia neonatal [Recovering/Resolving]
  - Foetal exposure during pregnancy [Unknown]

NARRATIVE: CASE EVENT DATE: 20170530
